FAERS Safety Report 5383229-8 (Version None)
Quarter: 2007Q3

REPORT INFORMATION
  Report Type: 
  Country: None (occurrence: None)
  Receive Date: 20070710
  Receipt Date: 20070626
  Transmission Date: 20080115
  Serious: Yes (Other)
  Sender: FDA-Public Use
  Company Number: US-ELI_LILLY_AND_COMPANY-US200706005953

PATIENT
  Age: 49 Year
  Sex: Male

DRUGS (2)
  1. CIALIS [Suspect]
     Indication: ERECTILE DYSFUNCTION
     Dosage: 10 MG, UNK
  2. METFORMIN [Concomitant]
     Dosage: 10 MG, UNK

REACTIONS (3)
  - DIABETIC RETINOPATHY [None]
  - SURGERY [None]
  - THERAPEUTIC RESPONSE DECREASED [None]
